FAERS Safety Report 12101265 (Version 1)
Quarter: 2016Q1

REPORT INFORMATION
  Report Type: Other
  Country: BR (occurrence: BR)
  Receive Date: 20160222
  Receipt Date: 20160222
  Transmission Date: 20160526
  Serious: Yes (Congenital Anomaly, Other)
  Sender: FDA-Public Use
  Company Number: BR-DEP_13658_2016

PATIENT

DRUGS (3)
  1. INDOMETHACIN. [Suspect]
     Active Substance: INDOMETHACIN
     Indication: MATERNAL EXPOSURE DURING PREGNANCY
     Route: 015
  2. PAIN RELIEF WITH CAFFEINE [Suspect]
     Active Substance: ANTIPYRINE\BELLADONNA LEAF\CAFFEINE CITRATE\CODEINE PHOSPHATE\PHENACETIN\PHENOBARBITAL
     Indication: MATERNAL EXPOSURE DURING PREGNANCY
     Dosage: WITH CAFFEINE 30 MG
     Route: 015
  3. SODIUM DICLOFENAC [Suspect]
     Active Substance: DICLOFENAC SODIUM
     Indication: MATERNAL EXPOSURE DURING PREGNANCY
     Dosage: ONCE
     Route: 015

REACTIONS (4)
  - Pericardial effusion [Unknown]
  - Foetal exposure during pregnancy [Recovered/Resolved]
  - Trisomy 21 [Not Recovered/Not Resolved]
  - Ductus arteriosus stenosis foetal [Unknown]
